FAERS Safety Report 17344319 (Version 1)
Quarter: 2020Q1

REPORT INFORMATION
  Report Type: Spontaneous
  Country: US (occurrence: US)
  Receive Date: 20200129
  Receipt Date: 20200129
  Transmission Date: 20200409
  Serious: No
  Sender: FDA-Public Use
  Company Number: US-ALLERGAN-1929843US

PATIENT
  Age: 55 Year
  Sex: Female

DRUGS (15)
  1. BOTOX COSMETIC [Suspect]
     Active Substance: ONABOTULINUMTOXINA
     Dosage: 5 UNITS, SINGLE
     Dates: start: 20190202, end: 20190202
  2. BOTOX COSMETIC [Suspect]
     Active Substance: ONABOTULINUMTOXINA
     Dosage: 0.5 UNITS, SINGLE
     Dates: start: 20190624, end: 20190624
  3. BOTOX COSMETIC [Suspect]
     Active Substance: ONABOTULINUMTOXINA
     Dosage: UNK UNK, SINGLE
     Dates: start: 20190202, end: 20190202
  4. BOTOX COSMETIC [Suspect]
     Active Substance: ONABOTULINUMTOXINA
     Indication: SKIN WRINKLING
     Dosage: 1 UNITS, SINGLE
     Dates: start: 20190625, end: 20190625
  5. ORACEA [Concomitant]
     Active Substance: DOXYCYCLINE
     Indication: ROSACEA
     Dosage: UNK
     Route: 061
  6. BOTOX COSMETIC [Suspect]
     Active Substance: ONABOTULINUMTOXINA
     Indication: SKIN WRINKLING
     Dosage: 1 UNITS, SINGLE
     Dates: start: 20190625, end: 20190625
  7. BOTOX COSMETIC [Suspect]
     Active Substance: ONABOTULINUMTOXINA
     Dosage: UNK UNK, SINGLE
     Dates: start: 20190202, end: 20190202
  8. BOTOX COSMETIC [Suspect]
     Active Substance: ONABOTULINUMTOXINA
     Indication: SKIN WRINKLING
     Dosage: 2.5 UNITS, SINGLE
     Dates: start: 20190625, end: 20190625
  9. BOTOX COSMETIC [Suspect]
     Active Substance: ONABOTULINUMTOXINA
     Dosage: 0.5 UNITS, SINGLE
     Dates: start: 20190624, end: 20190624
  10. BOTOX COSMETIC [Suspect]
     Active Substance: ONABOTULINUMTOXINA
     Dosage: 5 UNITS, SINGLE
     Dates: start: 20190213, end: 20190213
  11. BOTOX COSMETIC [Suspect]
     Active Substance: ONABOTULINUMTOXINA
     Indication: SKIN WRINKLING
     Dosage: 1 UNITS, SINGLE
     Dates: start: 20190625, end: 20190625
  12. BOTOX COSMETIC [Suspect]
     Active Substance: ONABOTULINUMTOXINA
     Dosage: 0.5 UNITS, SINGLE
     Dates: start: 20190624, end: 20190624
  13. BOTOX COSMETIC [Suspect]
     Active Substance: ONABOTULINUMTOXINA
     Dosage: UNK UNK, SINGLE
     Dates: start: 20190202, end: 20190202
  14. BOTOX COSMETIC [Suspect]
     Active Substance: ONABOTULINUMTOXINA
     Indication: FACE LIFT
     Dosage: 1 UNITS, SINGLE
     Dates: start: 20190624, end: 20190624
  15. BOTOX COSMETIC [Suspect]
     Active Substance: ONABOTULINUMTOXINA
     Dosage: UNK UNK, SINGLE
     Dates: start: 20190202, end: 20190202

REACTIONS (9)
  - Dermatochalasis [Recovering/Resolving]
  - Eyelid sensory disorder [Recovering/Resolving]
  - Skin tightness [Recovering/Resolving]
  - Eyelid ptosis [Not Recovered/Not Resolved]
  - Off label use [Unknown]
  - Skin laxity [Not Recovered/Not Resolved]
  - Muscle twitching [Recovering/Resolving]
  - Asthenopia [Not Recovered/Not Resolved]
  - Skin atrophy [Recovering/Resolving]

NARRATIVE: CASE EVENT DATE: 20190202
